FAERS Safety Report 7181015-X (Version None)
Quarter: 2010Q4

REPORT INFORMATION
  Report Type: 
  Country: None (occurrence: None)
  Receive Date: 20101221
  Receipt Date: 20100415
  Transmission Date: 20110411
  Serious: No
  Sender: FDA-Public Use
  Company Number: US-AMGEN-KDL406478

PATIENT

DRUGS (14)
  1. ENBREL [Suspect]
     Indication: PRODUCT USED FOR UNKNOWN INDICATION
     Dosage: 50 MG, QWK
     Route: 058
  2. BUMETANIDE [Concomitant]
     Dosage: 1 MG, UNK
  3. ALPRAZOLAM [Concomitant]
     Dosage: 1 MG, UNK
  4. ZOLPIDEM TARTRATE [Concomitant]
     Dosage: 5 MG, UNK
  5. ANTIHISTAMINES [Concomitant]
     Dosage: .02 %, UNK
  6. DILTIAZEM HYDROCHLORIDE [Concomitant]
     Dosage: 180 MG, UNK
  7. FEXOFENADINE HCL [Concomitant]
     Dosage: 60 MG, UNK
  8. NITROFURANTOIN [Concomitant]
     Dosage: 50 MG, UNK
  9. FLUTICASONE PROPIONATE [Concomitant]
     Dosage: .05 %, UNK
  10. SUMATRIPTAN [Concomitant]
     Dosage: 50 MG, UNK
  11. POTASSIUM CHLORIDE [Concomitant]
     Dosage: UNK UNK, UNK
  12. ROSUVASTATIN CALCIUM [Concomitant]
     Dosage: 20 MG, UNK
  13. CELEXA [Concomitant]
     Dosage: 20 MG, UNK
  14. RABEPRAZOLE SODIUM [Concomitant]
     Dosage: 20 MG, UNK

REACTIONS (2)
  - INJECTION SITE ERYTHEMA [None]
  - INJECTION SITE REACTION [None]
